FAERS Safety Report 6359965-3 (Version None)
Quarter: 2009Q3

REPORT INFORMATION
  Report Type: 
  Country: None (occurrence: None)
  Receive Date: 20090917
  Receipt Date: 20090904
  Transmission Date: 20100115
  Serious: Yes (Other)
  Sender: FDA-Public Use
  Company Number: US-BAYER-200914076BCC

PATIENT
  Age: 80 Year
  Sex: Female
  Weight: 56 kg

DRUGS (3)
  1. ASPIRIN [Suspect]
     Indication: ISCHAEMIC HEART DISEASE PROPHYLAXIS
     Dosage: TOTAL DAILY DOSE: 1 DF  UNIT DOSE: 1 DF
     Route: 048
     Dates: start: 20090724, end: 20090817
  2. CARDIZEM [Concomitant]
  3. SYNTHROID [Concomitant]

REACTIONS (6)
  - ABDOMINAL RIGIDITY [None]
  - ANORECTAL DISCOMFORT [None]
  - ERUCTATION [None]
  - FATIGUE [None]
  - FLATULENCE [None]
  - RECTAL HAEMORRHAGE [None]
